FAERS Safety Report 11766639 (Version 3)
Quarter: 2015Q4

REPORT INFORMATION
  Report Type: Spontaneous
  Country: US (occurrence: US)
  Receive Date: 20151123
  Receipt Date: 20151221
  Transmission Date: 20160304
  Serious: Yes (Hospitalization)
  Sender: FDA-Public Use
  Company Number: US-BEH-2015055882

PATIENT
  Age: 78 Year
  Sex: Female
  Weight: 65 kg

DRUGS (25)
  1. SODIUM CHLORIDE. [Concomitant]
     Active Substance: SODIUM CHLORIDE
  2. PREDNISONE. [Concomitant]
     Active Substance: PREDNISONE
  3. FLUDROCORTISONE [Concomitant]
     Active Substance: FLUDROCORTISONE
  4. CLARITIN [Concomitant]
     Active Substance: LORATADINE
  5. OMEPRAZOLE. [Concomitant]
     Active Substance: OMEPRAZOLE
  6. CALCIUM FOR WOMEN [Concomitant]
  7. DIPHENHYDRAMINE. [Concomitant]
     Active Substance: DIPHENHYDRAMINE
  8. OXYGEN. [Concomitant]
     Active Substance: OXYGEN
  9. ULORIC [Concomitant]
     Active Substance: FEBUXOSTAT
  10. IPRATROPIUM [Concomitant]
     Active Substance: IPRATROPIUM
  11. LIDOCAINE/PRILOCAINE [Concomitant]
  12. SYNTHROID [Concomitant]
     Active Substance: LEVOTHYROXINE SODIUM
  13. ASPIRIN. [Concomitant]
     Active Substance: ASPIRIN
  14. FOSAMAX [Concomitant]
     Active Substance: ALENDRONATE SODIUM
  15. SINGULAIR [Concomitant]
     Active Substance: MONTELUKAST SODIUM
  16. ALBUTEROL. [Concomitant]
     Active Substance: ALBUTEROL
  17. GLUCOSAMINE - CHONDROITIN [Concomitant]
  18. MULTIVITAMINS [Concomitant]
     Active Substance: VITAMINS
  19. ADVAIR DISKUS [Concomitant]
     Active Substance: FLUTICASONE PROPIONATE\SALMETEROL XINAFOATE
  20. ATORVASTATIN CALCIUM. [Concomitant]
     Active Substance: ATORVASTATIN CALCIUM
  21. MAGNESIUM [Concomitant]
     Active Substance: MAGNESIUM
  22. EPIPEN [Concomitant]
     Active Substance: EPINEPHRINE
  23. ZEMAIRA [Suspect]
     Active Substance: .ALPHA.1-PROTEINASE INHIBITOR HUMAN
     Indication: ALPHA-1 ANTI-TRYPSIN DEFICIENCY
     Dosage: 1048 MG/VL
     Route: 042
     Dates: start: 20101103
  24. VENTOLIN [Concomitant]
     Active Substance: ALBUTEROL SULFATE
  25. VITAMIN D3 [Concomitant]
     Active Substance: CHOLECALCIFEROL

REACTIONS (7)
  - Pneumonia [Unknown]
  - Vomiting [Unknown]
  - Respiratory tract infection [Unknown]
  - Productive cough [Unknown]
  - Pyrexia [Unknown]
  - Diarrhoea [Unknown]
  - Nausea [Unknown]

NARRATIVE: CASE EVENT DATE: 20151116
